FAERS Safety Report 23648856 (Version 1)
Quarter: 2024Q1

REPORT INFORMATION
  Report Type: Spontaneous
  Country: RO (occurrence: RO)
  Receive Date: 20240319
  Receipt Date: 20240319
  Transmission Date: 20240409
  Serious: Yes (Death, Other)
  Sender: FDA-Public Use
  Company Number: RO-002147023-NVSC2024RO058421

PATIENT
  Age: 63 Year
  Sex: Female
  Weight: 56 kg

DRUGS (3)
  1. KISQALI [Suspect]
     Active Substance: RIBOCICLIB
     Indication: Breast cancer
     Dosage: 600 MG, QD (FOR 21DAYS, 7 DAYS  BREAK)
     Route: 065
     Dates: start: 20230420
  2. LETROZOLE [Concomitant]
     Active Substance: LETROZOLE
     Indication: Product used for unknown indication
     Dosage: 2.5 MG, QD
     Route: 065
  3. IBANDRONIC ACID [Concomitant]
     Active Substance: IBANDRONIC ACID
     Indication: Product used for unknown indication
     Dosage: 6 MG (PER 28 DAYS)
     Route: 065

REACTIONS (8)
  - Coma [Fatal]
  - Hepatocellular injury [Unknown]
  - Neutrophilia [Unknown]
  - Motor dysfunction [Unknown]
  - Thrombocytosis [Unknown]
  - Emotional distress [Unknown]
  - Back pain [Unknown]
  - Absence of immediate treatment response [Unknown]

NARRATIVE: CASE EVENT DATE: 20230501
